APPROVED DRUG PRODUCT: CARBIDOPA AND LEVODOPA
Active Ingredient: CARBIDOPA; LEVODOPA
Strength: 10MG;100MG
Dosage Form/Route: TABLET;ORAL
Application: A073381 | Product #001
Applicant: WATSON LABORATORIES INC
Approved: Sep 28, 1993 | RLD: No | RS: No | Type: DISCN